FAERS Safety Report 17847139 (Version 2)
Quarter: 2020Q2

REPORT INFORMATION
  Report Type: Report from Study
  Country: CN (occurrence: CN)
  Receive Date: 20200601
  Receipt Date: 20200603
  Transmission Date: 20200714
  Serious: Yes (Death)
  Sender: FDA-Public Use
  Company Number: CN-CHIESI USA, INC.-CN-2020CHI000340

PATIENT

DRUGS (1)
  1. CUROSURF [Suspect]
     Active Substance: PORACTANT ALFA
     Indication: NEONATAL RESPIRATORY DISTRESS SYNDROME
     Dosage: UNK
     Route: 065

REACTIONS (2)
  - Death neonatal [Fatal]
  - Drug ineffective [Fatal]
